FAERS Safety Report 6578291-0 (Version None)
Quarter: 2010Q1

REPORT INFORMATION
  Report Type: 
  Country: None (occurrence: None)
  Receive Date: 20100211
  Receipt Date: 20100205
  Transmission Date: 20100710
  Serious: Yes (Life-Threatening)
  Sender: FDA-Public Use
  Company Number: B0631509A

PATIENT
  Sex: Male

DRUGS (9)
  1. CLAMOXYL [Suspect]
     Indication: PHARYNGITIS
     Dosage: 1UNIT SINGLE DOSE
     Route: 048
     Dates: start: 20090217, end: 20090217
  2. PLAVIX [Concomitant]
     Route: 065
  3. CARDENSIEL [Concomitant]
     Route: 065
  4. LASILIX [Concomitant]
     Route: 065
  5. TRIATEC [Concomitant]
     Route: 065
  6. ASPEGIC 1000 [Concomitant]
     Route: 065
  7. INSPRA [Concomitant]
     Route: 065
  8. TAHOR [Concomitant]
     Route: 065
  9. DIAMICRON [Concomitant]
     Route: 065

REACTIONS (4)
  - ANAPHYLACTIC SHOCK [None]
  - HYPERHIDROSIS [None]
  - MALAISE [None]
  - URTICARIA [None]
